FAERS Safety Report 9007509 (Version 1)
Quarter: 2013Q1

REPORT INFORMATION
  Report Type: Spontaneous
  Country: US (occurrence: US)
  Receive Date: 20130111
  Receipt Date: 20130111
  Transmission Date: 20140127
  Serious: Yes (Other)
  Sender: FDA-Public Use
  Company Number: US-009507513-1012USA00413

PATIENT
  Age: 55 Year
  Sex: Female
  Weight: 64.86 kg

DRUGS (1)
  1. SINGULAIR [Suspect]
     Dosage: 10 MG, PRN
     Route: 048
     Dates: start: 20090908, end: 20100120

REACTIONS (8)
  - Chest discomfort [Unknown]
  - Dyspnoea [Unknown]
  - Headache [Unknown]
  - Hyperaesthesia [Unknown]
  - Insomnia [Unknown]
  - Nausea [Unknown]
  - Nightmare [Unknown]
  - Photophobia [Unknown]
